FAERS Safety Report 4714635-X (Version None)
Quarter: 2005Q3

REPORT INFORMATION
  Report Type: 
  Country: None (occurrence: None)
  Receive Date: 20050714
  Receipt Date: 20050630
  Transmission Date: 20060218
  Serious: Yes (Other)
  Sender: FDA-Public Use
  Company Number: 2005089429

PATIENT
  Age: 49 Year
  Sex: Female
  Weight: 64.4108 kg

DRUGS (10)
  1. PURELL INSTANT HAND SANITIZING WIPES (ETHYL ALCOHOL) [Suspect]
     Indication: ANTI-INFECTIVE THERAPY
     Dosage: 1 WIPE ONCE, TOPICAL
     Route: 061
     Dates: start: 20050615, end: 20050615
  2. DIPHENHYDRAMINE HCL [Concomitant]
  3. CETIRIZINE HYDRCHLORIDE (CETIRIZINE HYDROCHLORIDE) [Concomitant]
  4. FEXOFENADINE HYDROCHLORIDE [Concomitant]
  5. FLUTICASONE PROPIONATE [Concomitant]
  6. MONTELUKAST SODIUM (MONTELUKAST SODIUM) [Concomitant]
  7. ESCITALOPRAM OXALATE [Concomitant]
  8. TRAZODONE (TRAZODONE) [Concomitant]
  9. LORAZEPAM [Concomitant]
  10. PETIBELLE FILMTABLETTEN (DROSPIRENONE, ETHINYLESTRADIOL) [Concomitant]

REACTIONS (5)
  - CREPITATIONS [None]
  - PRURITUS [None]
  - THROAT TIGHTNESS [None]
  - URTICARIA [None]
  - WHEEZING [None]
